FAERS Safety Report 6026998-6 (Version None)
Quarter: 2009Q1

REPORT INFORMATION
  Report Type: 
  Country: None (occurrence: None)
  Receive Date: 20090105
  Receipt Date: 20081223
  Transmission Date: 20090719
  Serious: Yes (Death, Hospitalization)
  Sender: FDA-Public Use
  Company Number: ES-PFIZER INC-2008070107

PATIENT

DRUGS (13)
  1. *ERLOTINIB [Suspect]
     Indication: NON-SMALL CELL LUNG CANCER
     Dosage: 150 MG, 1X/DAY
     Route: 048
     Dates: start: 20080718, end: 20080826
  2. BLINDED *PLACEBO [Suspect]
     Indication: NON-SMALL CELL LUNG CANCER
     Dosage: 37.5 MG, 1X/DAY
     Route: 048
     Dates: start: 20080718, end: 20080826
  3. BLINDED SUNITINIB MALATE [Suspect]
     Indication: NON-SMALL CELL LUNG CANCER
     Dosage: 37.5 MG, 1X/DAY
     Route: 048
     Dates: start: 20080718, end: 20080826
  4. VOLTAREN [Concomitant]
     Dates: start: 20080401
  5. ENALAPRIL MALEATE [Concomitant]
     Dates: start: 20080401
  6. OMEPRAZOLE [Concomitant]
     Dates: start: 20080401
  7. MEGESTROL ACETATE [Concomitant]
     Dates: start: 20080701
  8. LORAZEPAM [Concomitant]
     Dates: start: 20080701
  9. FENTANYL-100 [Concomitant]
     Dates: start: 20080601
  10. METFORMIN [Concomitant]
     Dates: start: 20080701
  11. ALPRAZOLAM [Concomitant]
     Dates: start: 20070101
  12. SERTRALINE [Concomitant]
     Dates: start: 20070101
  13. MIRTAZAPINE [Concomitant]
     Dates: start: 20080801

REACTIONS (3)
  - ATAXIA [None]
  - DISEASE PROGRESSION [None]
  - NON-SMALL CELL LUNG CANCER [None]
